FAERS Safety Report 7372031-3 (Version None)
Quarter: 2011Q1

REPORT INFORMATION
  Report Type: 
  Country: None (occurrence: None)
  Receive Date: 20110324
  Receipt Date: 20110309
  Transmission Date: 20110831
  Serious: Yes (Other)
  Sender: FDA-Public Use
  Company Number: PHHY2011JP19645

PATIENT
  Sex: Male
  Weight: 68.3 kg

DRUGS (13)
  1. ZYLORIC [Concomitant]
     Indication: PROPHYLAXIS
     Dosage: 100 MG, UNK
     Route: 048
     Dates: start: 20100226
  2. ITRIZOLE [Concomitant]
     Dosage: 10 ML, UNK
     Route: 048
     Dates: end: 20101026
  3. KLARICID [Concomitant]
     Dosage: 400 MG, UNK
     Route: 048
     Dates: end: 20101026
  4. PRIMOBOLAN [Concomitant]
     Dosage: 10 MG, UNK
     Route: 048
     Dates: end: 20101026
  5. EXJADE [Suspect]
     Indication: MYELODYSPLASTIC SYNDROME
     Dosage: 500 MG DAILY
     Route: 048
     Dates: start: 20091026, end: 20091203
  6. BAKTAR [Concomitant]
     Indication: PROPHYLAXIS
     Dosage: 01 DF, UNK
     Route: 045
     Dates: start: 20091026
  7. RED BLOOD CELLS, LEUCOCYTE DEPLETED [Concomitant]
     Dosage: 02 UNITS EVERY 4 WEEKS
     Dates: start: 20100325
  8. ITRIZOLE [Concomitant]
     Indication: PROPHYLAXIS
     Dosage: 10 ML, UNK
     Route: 048
     Dates: start: 20091026
  9. RED BLOOD CELLS, LEUCOCYTE DEPLETED [Concomitant]
     Dosage: 02 UNITS EVERY 2 WEEKS
     Dates: start: 20091026, end: 20091225
  10. KLARICID [Concomitant]
     Indication: PROPHYLAXIS
     Dosage: 400 MG, UNK
     Route: 048
     Dates: start: 20091026
  11. ZYLORIC [Concomitant]
     Dosage: 100 MG, UNK
     Route: 048
     Dates: end: 20100901
  12. EXJADE [Suspect]
     Dosage: 500 MG DAILY
     Route: 048
     Dates: start: 20100603
  13. PRIMOBOLAN [Concomitant]
     Indication: MYELODYSPLASTIC SYNDROME
     Dosage: 10 MG, UNK
     Route: 048
     Dates: start: 20091026

REACTIONS (5)
  - LIVER DISORDER [None]
  - HAEMOGLOBIN DECREASED [None]
  - HAEMATOCRIT DECREASED [None]
  - WHITE BLOOD CELL COUNT DECREASED [None]
  - BLOOD CREATININE INCREASED [None]
